FAERS Safety Report 6223801-6 (Version None)
Quarter: 2009Q2

REPORT INFORMATION
  Report Type: 
  Country: None (occurrence: None)
  Receive Date: 20090611
  Receipt Date: 20090303
  Transmission Date: 20091009
  Serious: No
  Sender: FDA-Public Use
  Company Number: US-ABBOTT-09P-163-0558821-00

PATIENT
  Sex: Female
  Weight: 60.836 kg

DRUGS (2)
  1. HUMIRA [Suspect]
     Indication: CROHN'S DISEASE
     Dates: start: 20090223
  2. RETIN-A [Concomitant]
     Indication: DRUG USE FOR UNKNOWN INDICATION

REACTIONS (5)
  - ABDOMINAL PAIN [None]
  - INJECTION SITE IRRITATION [None]
  - PRURITUS [None]
  - RASH [None]
  - SENSORY DISTURBANCE [None]
